FAERS Safety Report 22284986 (Version 2)
Quarter: 2023Q2

REPORT INFORMATION
  Report Type: Spontaneous
  Country: US (occurrence: US)
  Receive Date: 20230504
  Receipt Date: 20230613
  Transmission Date: 20230722
  Serious: Yes (Hospitalization)
  Sender: FDA-Public Use
  Company Number: US-PFIZER INC-202300175511

PATIENT
  Age: 86 Year
  Sex: Male
  Weight: 90.26 kg

DRUGS (3)
  1. PAXLOVID [Suspect]
     Active Substance: NIRMATRELVIR\RITONAVIR
     Indication: COVID-19 treatment
     Dosage: 2 DF, 2X/DAY
     Route: 048
  2. ENOXAPARIN SODIUM [Suspect]
     Active Substance: ENOXAPARIN SODIUM
     Indication: COVID-19
     Dosage: UNK [80/0.8ML; INJECTED JUST ONCE AND THAT WAS ENOUGH]
     Route: 058
     Dates: start: 20230427
  3. ENOXAPARIN SODIUM [Suspect]
     Active Substance: ENOXAPARIN SODIUM
     Dosage: 2SHOTS AM-PM

REACTIONS (4)
  - Amnesia [Not Recovered/Not Resolved]
  - Feeling abnormal [Not Recovered/Not Resolved]
  - Arthralgia [Unknown]
  - Vertigo [Unknown]

NARRATIVE: CASE EVENT DATE: 20230427
